FAERS Safety Report 13819329 (Version 1)
Quarter: 2017Q3

REPORT INFORMATION
  Report Type: Report from Study
  Country: US (occurrence: US)
  Receive Date: 20170731
  Receipt Date: 20170731
  Transmission Date: 20171127
  Serious: No
  Sender: FDA-Public Use
  Company Number: US-EXELIXIS-CABO-17008189

PATIENT
  Sex: Female

DRUGS (12)
  1. CABOMETYX [Suspect]
     Active Substance: CABOZANTINIB S-MALATE
     Indication: NEOPLASM MALIGNANT
     Dosage: 20 MG, QD
     Route: 048
     Dates: start: 20160720
  2. CALCIUM [Concomitant]
     Active Substance: CALCIUM
  3. MULTIVITAMINS, PLAIN [Concomitant]
     Active Substance: VITAMINS
  4. LASIX [Concomitant]
     Active Substance: FUROSEMIDE
  5. POTASSIUM [Concomitant]
     Active Substance: POTASSIUM
  6. SIMVASTATIN. [Concomitant]
     Active Substance: SIMVASTATIN
  7. AMLODIPINE [Concomitant]
     Active Substance: AMLODIPINE BESYLATE
  8. METFORMIN [Concomitant]
     Active Substance: METFORMIN HYDROCHLORIDE
  9. FOSINOPRIL [Concomitant]
     Active Substance: FOSINOPRIL
  10. METOPROLOL. [Concomitant]
     Active Substance: METOPROLOL
  11. CABOMETYX [Suspect]
     Active Substance: CABOZANTINIB S-MALATE
     Indication: RENAL CANCER
     Dosage: 60 MG, QD
     Route: 048
     Dates: start: 20160526, end: 201605
  12. WARFARIN [Concomitant]
     Active Substance: WARFARIN

REACTIONS (2)
  - Hair colour changes [Not Recovered/Not Resolved]
  - Pain in extremity [Not Recovered/Not Resolved]
